FAERS Safety Report 5923899-6 (Version None)
Quarter: 2008Q4

REPORT INFORMATION
  Report Type: 
  Country: None (occurrence: None)
  Receive Date: 20081020
  Receipt Date: 20081014
  Transmission Date: 20090506
  Serious: Yes (Hospitalization)
  Sender: FDA-Public Use
  Company Number: US-MERCK-0810USA02500

PATIENT
  Sex: Female

DRUGS (2)
  1. JANUVIA [Suspect]
     Indication: BLOOD GLUCOSE
     Route: 048
  2. STATIN (UNSPECIFIED) [Concomitant]
     Route: 065
     Dates: start: 20000101

REACTIONS (3)
  - DRUG INEFFECTIVE [None]
  - RHABDOMYOLYSIS [None]
  - TREATMENT NONCOMPLIANCE [None]
